FAERS Safety Report 9347898 (Version 1)
Quarter: 2013Q2

REPORT INFORMATION
  Report Type: Spontaneous
  Country: US (occurrence: None)
  Receive Date: 20130612
  Receipt Date: 20130612
  Transmission Date: 20140414
  Serious: No
  Sender: FDA-Public Use
  Company Number: None

PATIENT
  Sex: Female
  Weight: 45.36 kg

DRUGS (1)
  1. XGEVA [Suspect]
     Indication: OSTEOPOROSIS
     Dosage: /... ML SOLN, 1/MONTH INJECTION
     Dates: start: 20121111, end: 20130109

REACTIONS (7)
  - Fear [None]
  - Blister [None]
  - Rash [None]
  - Pruritus [None]
  - Melanocytic naevus [None]
  - Dental caries [None]
  - Middle insomnia [None]
